FAERS Safety Report 4882740-3 (Version None)
Quarter: 2006Q1

REPORT INFORMATION
  Report Type: 
  Country: None (occurrence: None)
  Receive Date: 20060117
  Receipt Date: 20050317
  Transmission Date: 20060701
  Serious: Yes (Hospitalization)
  Sender: FDA-Public Use
  Company Number: US-MERCK-0503USA03411

PATIENT
  Age: 61 Year
  Sex: Male
  Weight: 82 kg

DRUGS (20)
  1. VIOXX [Suspect]
     Indication: PAIN
     Route: 048
     Dates: start: 20030101, end: 20040901
  2. ZESTRIL [Concomitant]
     Route: 065
  3. ZETIA [Concomitant]
     Route: 048
  4. LOPRESSOR [Concomitant]
     Route: 065
  5. HYTRIN [Concomitant]
     Route: 065
  6. PLAVIX [Concomitant]
     Route: 065
  7. WELLBUTRIN [Concomitant]
     Route: 065
  8. IBUPROFEN [Concomitant]
     Route: 065
  9. AMBIEN [Concomitant]
     Route: 065
  10. NEURONTIN [Concomitant]
     Route: 065
  11. ECOTRIN [Concomitant]
     Route: 065
  12. PRINIVIL [Concomitant]
     Route: 048
  13. BETASERON [Concomitant]
     Route: 065
  14. [THERAPY UNSPECIFIED] [Concomitant]
     Route: 065
  15. NITROGLYCERIN [Concomitant]
     Route: 065
  16. TYLENOL (CAPLET) [Concomitant]
     Route: 065
  17. MORPHINE SULFATE [Concomitant]
     Route: 065
  18. LOVENOX [Concomitant]
     Route: 065
  19. COLACE [Concomitant]
     Route: 065
  20. VIAGRA [Concomitant]
     Route: 065

REACTIONS (3)
  - CHEST PAIN [None]
  - MYOCARDIAL INFARCTION [None]
  - SYNCOPE [None]
